FAERS Safety Report 23411911 (Version 1)
Quarter: 2024Q1

REPORT INFORMATION
  Report Type: Spontaneous
  Country: CN (occurrence: CN)
  Receive Date: 20240117
  Receipt Date: 20240117
  Transmission Date: 20240410
  Serious: Yes (Hospitalization, Other)
  Sender: FDA-Public Use
  Company Number: CN-PFIZER INC-202400009574

PATIENT

DRUGS (1)
  1. XALKORI [Suspect]
     Active Substance: CRIZOTINIB
     Dosage: 2 CAPSULES A DAY
     Dates: start: 2023

REACTIONS (4)
  - Skin mass [Unknown]
  - Tumour marker increased [Unknown]
  - Rash [Unknown]
  - Bradycardia [Unknown]
